FAERS Safety Report 9052980 (Version 2)
Quarter: 2013Q1

REPORT INFORMATION
  Report Type: Spontaneous
  Country: US (occurrence: US)
  Receive Date: 20130208
  Receipt Date: 20130213
  Transmission Date: 20140127
  Serious: No
  Sender: FDA-Public Use
  Company Number: US-009507513-1302USA000728

PATIENT
  Age: 70 Year
  Sex: Female

DRUGS (3)
  1. JANUMET [Suspect]
     Indication: TYPE 2 DIABETES MELLITUS
     Dosage: 50/500 MG TAKEN TWICE DAILY
     Route: 048
     Dates: start: 201207
  2. GLIPIZIDE [Concomitant]
     Dosage: 2 IN THE MORNING AND 2 AT NIGHT
  3. GLIPIZIDE [Concomitant]
     Dosage: ON AT MORNING AND ONE AT NIGHT
     Dates: end: 20130124

REACTIONS (11)
  - Pneumonia [Unknown]
  - Dyspnoea [Unknown]
  - Fatigue [Unknown]
  - Gastrointestinal disorder [Unknown]
  - Abdominal pain upper [Unknown]
  - Seasonal allergy [Unknown]
  - Pain in extremity [Unknown]
  - Abdominal discomfort [Unknown]
  - Flatulence [Unknown]
  - Pain [Unknown]
  - Breast discomfort [Unknown]
